FAERS Safety Report 6176403-4 (Version None)
Quarter: 2009Q2

REPORT INFORMATION
  Report Type: 
  Country: None (occurrence: None)
  Receive Date: 20090501
  Receipt Date: 20080905
  Transmission Date: 20091009
  Serious: Yes (Hospitalization, Other)
  Sender: FDA-Public Use
  Company Number: ES-ALEXION-A200800212

PATIENT

DRUGS (2)
  1. SOLIRIS [Suspect]
     Indication: PAROXYSMAL NOCTURNAL HAEMOGLOBINURIA
     Dosage: 900 MG, SINGLE, Q12 DAYS
     Route: 042
     Dates: start: 20071113, end: 20080604
  2. ORAL ANTICOAGULANT [Concomitant]
     Dosage: UNK, UNK
     Route: 048
     Dates: start: 20040101

REACTIONS (3)
  - ANAEMIA [None]
  - HAEMOLYSIS [None]
  - SEPTIC SHOCK [None]
